FAERS Safety Report 6321727-0 (Version None)
Quarter: 2009Q3

REPORT INFORMATION
  Report Type: 
  Country: None (occurrence: None)
  Receive Date: 20090824
  Receipt Date: 20090814
  Transmission Date: 20100115
  Serious: Yes (Other)
  Sender: FDA-Public Use
  Company Number: SE-AMGEN-US361079

PATIENT
  Sex: Female

DRUGS (4)
  1. ENBREL [Suspect]
     Indication: DRUG USE FOR UNKNOWN INDICATION
     Dosage: DOSE UNKNOWN
     Route: 065
  2. ENBREL [Suspect]
     Dosage: DOSE UNKNOWN
     Dates: start: 20090101, end: 20090501
  3. ENBREL [Suspect]
     Dosage: DOSE UNKNOWN
     Dates: start: 20090101
  4. METHOTREXATE [Suspect]
     Indication: DRUG USE FOR UNKNOWN INDICATION

REACTIONS (3)
  - DIPLOPIA [None]
  - HEADACHE [None]
  - VISION BLURRED [None]
